FAERS Safety Report 12661194 (Version 1)
Quarter: 2016Q3

REPORT INFORMATION
  Report Type: Spontaneous
  Country: US (occurrence: US)
  Receive Date: 20160817
  Receipt Date: 20160817
  Transmission Date: 20161109
  Serious: Yes (Death)
  Sender: FDA-Public Use
  Company Number: US-PFIZER INC-2016384258

PATIENT
  Age: 34 Year
  Sex: Male

DRUGS (6)
  1. INDERAL [Suspect]
     Active Substance: PROPRANOLOL HYDROCHLORIDE
     Indication: TACHYCARDIA
     Dosage: 10 MG, 3X/DAY
     Dates: start: 1981
  2. PREDNISONE. [Suspect]
     Active Substance: PREDNISONE
     Indication: ASTHMA
     Dosage: 10 MG, 3X/DAY
     Dates: start: 1981, end: 1983
  3. VENTOLIN [Suspect]
     Active Substance: ALBUTEROL SULFATE
     Indication: ASTHMA
     Dosage: 2 INHALATIONS 4 TIMES A DAY
     Route: 055
     Dates: start: 1983
  4. PREDNISONE. [Suspect]
     Active Substance: PREDNISONE
     Dosage: 10 MG, ALTERNATE DAY
     Dates: start: 1983
  5. THEOBID [Suspect]
     Active Substance: THEOPHYLLINE ANHYDROUS
     Indication: ASTHMA
     Dosage: UNK
     Dates: start: 1983
  6. RU-TUSS [Suspect]
     Active Substance: ATROPINE SULFATE\CHLORPHENIRAMINE MALEATE\HYOSCYAMINE SULFATE\PHENYLEPHRINE HYDROCHLORIDE\PHENYLPROPANOLAMINE HYDROCHLORIDE\SCOPOLAMINE HYDROBROMIDE
     Indication: NASAL CONGESTION
     Dosage: UNK, AS NEEDED
     Dates: start: 1983

REACTIONS (8)
  - Sudden cardiac death [Fatal]
  - Arteriospasm coronary [Fatal]
  - Myocardial infarction [Fatal]
  - Ventricular hypertrophy [None]
  - Drug abuse [Fatal]
  - Lung disorder [None]
  - Anxiety [None]
  - Emotional disorder [None]
